FAERS Safety Report 8353985 (Version 2)
Quarter: 2015Q1

REPORT INFORMATION
  Report Type: Report from Study
  Country: US (occurrence: US)
  Receive Date: 20120125
  Receipt Date: 20150303
  Transmission Date: 20150721
  Serious: Yes (Death)
  Sender: FDA-Public Use
  Company Number: US-ROCHE-1033242

PATIENT
  Age: 61 Year
  Sex: Male

DRUGS (14)
  1. AVASTIN [Suspect]
     Active Substance: BEVACIZUMAB
     Dosage: INFUSION
     Route: 042
     Dates: start: 20071101
  2. AVASTIN [Suspect]
     Active Substance: BEVACIZUMAB
     Route: 042
  3. NEULASTA [Concomitant]
     Active Substance: PEGFILGRASTIM
     Route: 058
  4. ATIVAN [Concomitant]
     Active Substance: LORAZEPAM
     Route: 065
  5. DILAUDID [Concomitant]
     Active Substance: HYDROMORPHONE HYDROCHLORIDE
     Route: 065
  6. ZANTAC [Concomitant]
     Active Substance: RANITIDINE HYDROCHLORIDE
     Route: 065
  7. AVASTIN [Suspect]
     Active Substance: BEVACIZUMAB
     Indication: NEOPLASM MALIGNANT
     Route: 042
  8. KYTRIL [Concomitant]
     Active Substance: GRANISETRON HYDROCHLORIDE
     Route: 042
  9. DOXORUBICIN HCL [Concomitant]
     Active Substance: DOXORUBICIN HYDROCHLORIDE
     Route: 042
  10. ZOMETA [Concomitant]
     Active Substance: ZOLEDRONIC ACID
     Route: 042
  11. DEXAMETHASONE SODIUM PHOSPHATE. [Concomitant]
     Active Substance: DEXAMETHASONE SODIUM PHOSPHATE
     Route: 042
  12. AVASTIN [Suspect]
     Active Substance: BEVACIZUMAB
     Route: 042
  13. SODIUM CHLORIDE. [Concomitant]
     Active Substance: SODIUM CHLORIDE
     Route: 065
  14. ZOFRAN [Concomitant]
     Active Substance: ONDANSETRON HYDROCHLORIDE
     Route: 042

REACTIONS (22)
  - Fatigue [Unknown]
  - Nausea [Unknown]
  - Vomiting [Unknown]
  - Asthenia [Unknown]
  - Contusion [Unknown]
  - Mouth ulceration [Unknown]
  - Mucous membrane disorder [Unknown]
  - Decubitus ulcer [Unknown]
  - Wound [Recovering/Resolving]
  - Weight decreased [Unknown]
  - Alopecia [Unknown]
  - Abasia [Unknown]
  - Death [Fatal]
  - Decreased appetite [Unknown]
  - Anxiety [Unknown]
  - Chest pain [Unknown]
  - Back pain [Unknown]
  - Dysstasia [Unknown]
  - Off label use [Unknown]
  - Dyspnoea exertional [Unknown]
  - Pain [Unknown]
  - Constipation [Unknown]

NARRATIVE: CASE EVENT DATE: 20080401
